FAERS Safety Report 17542305 (Version 1)
Quarter: 2020Q1

REPORT INFORMATION
  Report Type: Spontaneous
  Country: US (occurrence: US)
  Receive Date: 20200313
  Receipt Date: 20200313
  Transmission Date: 20200409
  Serious: Yes (Hospitalization)
  Sender: FDA-Public Use
  Company Number: US-ELI_LILLY_AND_COMPANY-US202003001956

PATIENT
  Sex: Female

DRUGS (2)
  1. STRENSIQ [Suspect]
     Active Substance: ASFOTASE ALFA
     Indication: HYPOPHOSPHATASIA
     Dosage: UNK UNK, UNKNOWN
     Route: 065
  2. CYMBALTA [Suspect]
     Active Substance: DULOXETINE HYDROCHLORIDE
     Indication: NEUROPATHY PERIPHERAL
     Dosage: 60 MG, UNKNOWN
     Route: 065

REACTIONS (16)
  - Palpitations [Unknown]
  - Hypertension [Unknown]
  - Postural orthostatic tachycardia syndrome [Unknown]
  - Nausea [Unknown]
  - Hypotension [Unknown]
  - Left ventricular enlargement [Unknown]
  - Dizziness [Unknown]
  - Vomiting [Unknown]
  - Neuropathy peripheral [Unknown]
  - Heart rate decreased [Unknown]
  - Pain [Unknown]
  - Malaise [Unknown]
  - Incorrect dose administered [Unknown]
  - Headache [Unknown]
  - Echocardiogram abnormal [Unknown]
  - Ejection fraction decreased [Unknown]
